FAERS Safety Report 14844155 (Version 4)
Quarter: 2020Q2

REPORT INFORMATION
  Report Type: Spontaneous
  Country: US (occurrence: US)
  Receive Date: 20180503
  Receipt Date: 20200408
  Transmission Date: 20200713
  Serious: Yes (Other)
  Sender: FDA-Public Use
  Company Number: US-PFIZER INC-2018180054

PATIENT
  Age: 59 Year
  Sex: Female

DRUGS (1)
  1. BUPIVACAINE HCL [Suspect]
     Active Substance: BUPIVACAINE HYDROCHLORIDE
     Indication: HAEMORRHOID OPERATION
     Dosage: UNK

REACTIONS (3)
  - Bradycardia [Recovered/Resolved]
  - Pulseless electrical activity [Recovered/Resolved]
  - Toxicity to various agents [Recovered/Resolved]
